FAERS Safety Report 9635729 (Version 2)
Quarter: 2013Q4

REPORT INFORMATION
  Report Type: Spontaneous
  Country: DE (occurrence: DE)
  Receive Date: 20131021
  Receipt Date: 20131031
  Transmission Date: 20140711
  Serious: Yes (Life-Threatening, Hospitalization)
  Sender: FDA-Public Use
  Company Number: DE-GLAXOSMITHKLINE-D0081404A

PATIENT
  Sex: Female
  Weight: 64 kg

DRUGS (4)
  1. ARIXTRA [Suspect]
     Indication: THROMBOSIS PROPHYLAXIS
     Dosage: 2.5MG PER DAY
     Route: 058
  2. CANDESARTAN [Concomitant]
     Indication: HYPERTENSION
     Dosage: 16MG PER DAY
     Route: 048
  3. AMLODIPIN [Concomitant]
     Dosage: 5MG TWICE PER DAY
     Route: 048
  4. PANTOZOL [Concomitant]
     Dosage: 40MG AT NIGHT
     Route: 048

REACTIONS (3)
  - Retroperitoneal haematoma [Recovered/Resolved]
  - Haemoglobin decreased [Recovered/Resolved]
  - Syncope [Recovered/Resolved]
